FAERS Safety Report 4446145-1 (Version None)
Quarter: 2004Q3

REPORT INFORMATION
  Report Type: 
  Country: None (occurrence: None)
  Receive Date: 20040907
  Receipt Date: 20040826
  Transmission Date: 20050211
  Serious: Yes (Hospitalization)
  Sender: FDA-Public Use
  Company Number: FR-JNJFOC-20040606332

PATIENT
  Sex: Male
  Weight: 3.03 kg

DRUGS (1)
  1. EPITOMAX [Suspect]
     Indication: DRUG USE FOR UNKNOWN INDICATION
     Route: 015

REACTIONS (23)
  - ANOREXIA [None]
  - APGAR SCORE LOW [None]
  - ASPARTATE AMINOTRANSFERASE INCREASED [None]
  - BRAIN OEDEMA [None]
  - CYTOLYTIC HEPATITIS [None]
  - DRUG EXPOSURE DURING PREGNANCY [None]
  - DRUG WITHDRAWAL SYNDROME [None]
  - ESCHERICHIA INFECTION [None]
  - FEVER NEONATAL [None]
  - FOETAL DISTRESS SYNDROME [None]
  - FOETAL MACROSOMIA [None]
  - GAMMA-GLUTAMYLTRANSFERASE INCREASED [None]
  - HYPOTONIA [None]
  - HYPOTONIA NEONATAL [None]
  - MACROSOMIA [None]
  - METABOLIC ACIDOSIS [None]
  - NERVOUS SYSTEM DISORDER [None]
  - PREMATURE BABY [None]
  - PROTHROMBIN LEVEL DECREASED [None]
  - PROTHROMBIN TIME PROLONGED [None]
  - PYREXIA [None]
  - UMBILICAL CORD AROUND NECK [None]
  - UMBILICAL CORD PROLAPSE [None]
